FAERS Safety Report 23636259 (Version 1)
Quarter: 2024Q1

REPORT INFORMATION
  Report Type: Spontaneous
  Country: FI (occurrence: FI)
  Receive Date: 20240315
  Receipt Date: 20240315
  Transmission Date: 20240410
  Serious: Yes (Life-Threatening)
  Sender: FDA-Public Use
  Company Number: None

PATIENT
  Age: 78 Year
  Sex: Male

DRUGS (4)
  1. TOCILIZUMAB [Suspect]
     Active Substance: TOCILIZUMAB
     Indication: Rheumatoid arthritis
     Dosage: ONE INJECTION WEEKLY UNDER THE SKIN / ONE SUBCUTANEOUS INJECTION WEEKLY
     Route: 058
     Dates: start: 202302, end: 20240226
  2. ATORVASTATIN [Concomitant]
     Active Substance: ATORVASTATIN
     Indication: Hyperlipidaemia
     Dosage: 20MG X 1 ILTAISIN SUUN KAUTTA / 20 MG ORALLY IN THE EVENING
     Dates: end: 20240226
  3. METHOTREXATE [Concomitant]
     Active Substance: METHOTREXATE
     Indication: Rheumatoid arthritis
     Dosage: 15MG PISTOS IHON ALLE KERRAN VIIKOSSA / 15 MG SUBCUTANEOUS INJECTION WEEKLY
     Dates: end: 20240226
  4. FOLIC ACID [Concomitant]
     Active Substance: FOLIC ACID

REACTIONS (9)
  - Cardiovascular insufficiency [Unknown]
  - Lactic acidosis [Unknown]
  - Thrombocytopenia [Unknown]
  - Hyperkalaemia [Unknown]
  - Multiple organ dysfunction syndrome [Unknown]
  - Anaemia [Unknown]
  - Acute hepatic failure [Unknown]
  - Functional gastrointestinal disorder [Unknown]
  - Depressed level of consciousness [Unknown]

NARRATIVE: CASE EVENT DATE: 20240201
